FAERS Safety Report 6631403-2 (Version None)
Quarter: 2010Q1

REPORT INFORMATION
  Report Type: 
  Country: None (occurrence: None)
  Receive Date: 20100311
  Receipt Date: 20100311
  Transmission Date: 20100710
  Serious: Yes (Other)
  Sender: FDA-Public Use
  Company Number: None

PATIENT
  Sex: Female
  Weight: 89.8122 kg

DRUGS (10)
  1. PEGASYS [Suspect]
     Indication: HEPATITIS C
     Dosage: 180 MCG/0.5 ML WEEKLY SQ
     Route: 058
     Dates: start: 20100225
  2. RIBAPAK 600/600 MG TAB 56 HOFFMANN-LA-ROCHE [Suspect]
     Indication: HEPATITIS C
     Dosage: 600/600 MG BID PO
     Route: 048
     Dates: start: 20100225
  3. LEVAQUIN [Concomitant]
  4. XANAX [Concomitant]
  5. SEROQUEL [Concomitant]
  6. LAMICTAL CD [Concomitant]
  7. IBUPROFEN [Concomitant]
  8. LIPITOR [Concomitant]
  9. FOLIC ACID [Concomitant]
  10. ACIPHEX [Concomitant]

REACTIONS (8)
  - APHONIA [None]
  - DYSPEPSIA [None]
  - LARYNGEAL OEDEMA [None]
  - PHARYNGEAL OEDEMA [None]
  - PNEUMONIA [None]
  - POLYDIPSIA [None]
  - SINUS DISORDER [None]
  - UNEVALUABLE EVENT [None]
